FAERS Safety Report 18447596 (Version 1)
Quarter: 2020Q4

REPORT INFORMATION
  Report Type: Spontaneous
  Country: CN (occurrence: CN)
  Receive Date: 20201101
  Receipt Date: 20201101
  Transmission Date: 20210114
  Serious: Yes (Hospitalization, Other)
  Sender: FDA-Public Use
  Company Number: NVSC2020CN286017

PATIENT
  Age: 66 Year
  Sex: Female

DRUGS (2)
  1. LESCOL [Suspect]
     Active Substance: FLUVASTATIN SODIUM
     Dosage: 1 DF
     Route: 048
     Dates: start: 20201020
  2. LESCOL [Suspect]
     Active Substance: FLUVASTATIN SODIUM
     Indication: PRODUCT USED FOR UNKNOWN INDICATION
     Dosage: 1 DF
     Route: 048
     Dates: start: 20200910

REACTIONS (13)
  - Blood lactate dehydrogenase increased [Recovering/Resolving]
  - Back pain [Unknown]
  - Blood creatine phosphokinase increased [Recovering/Resolving]
  - Pyrexia [Recovering/Resolving]
  - Liver injury [Recovering/Resolving]
  - Hypersensitivity [Recovering/Resolving]
  - Myalgia [Unknown]
  - Abdominal distension [Unknown]
  - Chest pain [Unknown]
  - Nausea [Unknown]
  - Temperature intolerance [Unknown]
  - Decreased appetite [Unknown]
  - Abdominal pain [Unknown]

NARRATIVE: CASE EVENT DATE: 20200911
